FAERS Safety Report 5212750-8 (Version None)
Quarter: 2006Q4

REPORT INFORMATION
  Report Type: 
  Country: None (occurrence: None)
  Receive Date: 20061115
  Receipt Date: 20060911
  Transmission Date: 20070319
  Serious: No
  Sender: FDA-Public Use
  Company Number: 200615553BWH

PATIENT
  Age: 86 Year
  Sex: Male

DRUGS (4)
  1. NEXAVAR [Suspect]
     Indication: RENAL CELL CARCINOMA STAGE UNSPECIFIED
     Dosage: 400 MG, BID, ORAL
     Route: 048
     Dates: start: 20060805
  2. PROSTATE MEDICATIONS [Concomitant]
  3. ANTIHYPERTENSIVE [Concomitant]
  4. ASPIRIN [Concomitant]

REACTIONS (4)
  - ERYTHEMA [None]
  - LIMB DISCOMFORT [None]
  - PAIN IN EXTREMITY [None]
  - SKIN EXFOLIATION [None]
